FAERS Safety Report 9336789 (Version 1)
Quarter: 2013Q2

REPORT INFORMATION
  Report Type: Spontaneous
  Country: DE (occurrence: DE)
  Receive Date: 20130607
  Receipt Date: 20130607
  Transmission Date: 20140414
  Serious: Yes (Other)
  Sender: FDA-Public Use
  Company Number: GXKR2013DE002028

PATIENT
  Sex: Female
  Weight: 70 kg

DRUGS (4)
  1. TOPIRAMATE [Suspect]
     Indication: EPILEPSY
     Dosage: 50 MG, BID
     Route: 048
     Dates: start: 2007
  2. EUTHYROX [Concomitant]
     Indication: HYPOTHYROIDISM
     Dosage: 50 UG, UNK
     Route: 048
  3. UTROGEST [Concomitant]
     Indication: PROPHYLAXIS OF ABORTION
     Dosage: 100 MG, UNK (IN APR/MAY 2013)
     Route: 048
  4. FOLIC ACID [Concomitant]
     Indication: PROPHYLAXIS OF NEURAL TUBE DEFECT
     Dosage: 0.4 MG, UNK
     Route: 048
     Dates: start: 20130228, end: 20130509

REACTIONS (1)
  - Abortion missed [Recovered/Resolved]
